FAERS Safety Report 20738591 (Version 1)
Quarter: 2022Q2

REPORT INFORMATION
  Report Type: Spontaneous
  Country: GB (occurrence: GB)
  Receive Date: 20220422
  Receipt Date: 20220422
  Transmission Date: 20220721
  Serious: Yes (Other)
  Sender: FDA-Public Use
  Company Number: None

PATIENT
  Age: 90 Year
  Sex: Female
  Weight: 72.59 kg

DRUGS (10)
  1. SPIRONOLACTONE [Suspect]
     Active Substance: SPIRONOLACTONE
     Indication: Gout
     Dosage: STRENGTH : 25 MG
     Route: 048
  2. ALLOPURINOL [Concomitant]
     Active Substance: ALLOPURINOL
     Dosage: UNIT DOSE AND STRENGTH  : 100 MG
     Dates: start: 20220318
  3. ATENOLOL [Concomitant]
     Active Substance: ATENOLOL
     Dosage: 1 DOSAGE FORMS DAILY; MORNING, STRENGTH : 50 MG, 25 MG
     Dates: start: 20220318
  4. BUMETANIDE [Concomitant]
     Active Substance: BUMETANIDE
     Dosage: 1 MILLIGRAM DAILY; MORNING, STRENGTH : 1 MG
     Dates: start: 20220318
  5. CLOPIDOGREL [Concomitant]
     Active Substance: CLOPIDOGREL BISULFATE
     Dosage: UNIT DOSE AND STRENGTH  ; 75 MG
     Dates: start: 20220318
  6. FLUCLOXACILLIN [Concomitant]
     Active Substance: FLUCLOXACILLIN
     Dosage: 1000 MILLIGRAM DAILY; STRENGTH : 250 MG
     Dates: start: 20220303
  7. FUCIDIN H [Concomitant]
     Dosage: APPLY THINLY TO AFFECTED AREAS
     Dates: start: 20220311
  8. LANSOPRAZOLE [Concomitant]
     Active Substance: LANSOPRAZOLE
     Dosage: 15 MILLIGRAM DAILY; STRENGTH : 15 MG
     Dates: start: 20220318
  9. LETROZOLE [Concomitant]
     Active Substance: LETROZOLE
     Dosage: 2.5 MILLIGRAM DAILY; STRENGTH :2.5 MG
     Dates: start: 20220318
  10. LINAGLIPTIN [Concomitant]
     Active Substance: LINAGLIPTIN
     Dosage: 1 DOSAGE FORMS DAILY;
     Dates: start: 20220318

REACTIONS (1)
  - Renal impairment [Recovered/Resolved]
